FAERS Safety Report 16513930 (Version 1)
Quarter: 2019Q3

REPORT INFORMATION
  Report Type: Spontaneous
  Country: US (occurrence: US)
  Receive Date: 20190701
  Receipt Date: 20190701
  Transmission Date: 20191004
  Serious: No
  Sender: FDA-Public Use
  Company Number: US-ROCHE-2237091

PATIENT
  Sex: Male

DRUGS (5)
  1. KLONOPIN [Suspect]
     Active Substance: CLONAZEPAM
     Indication: INSOMNIA
     Dosage: ONGOING: YES
     Route: 065
     Dates: start: 1995
  2. AMBIEN [Concomitant]
     Active Substance: ZOLPIDEM TARTRATE
     Route: 065
  3. CLONAZEPAM. [Suspect]
     Active Substance: CLONAZEPAM
     Indication: INSOMNIA
     Dosage: GENERIC CLONAZEPAM
     Route: 065
  4. KLONOPIN [Suspect]
     Active Substance: CLONAZEPAM
     Dosage: ONGOING: YES
     Route: 065
  5. HERBAL SUPPLEMENTS [Concomitant]
     Active Substance: HERBALS
     Route: 065

REACTIONS (13)
  - Disorientation [Unknown]
  - Vertigo [Recovered/Resolved]
  - Head discomfort [Recovered/Resolved]
  - Mood altered [Unknown]
  - Nervous system disorder [Unknown]
  - Tremor [Not Recovered/Not Resolved]
  - Headache [Recovered/Resolved]
  - Hypokinesia [Recovered/Resolved]
  - Drug ineffective [Unknown]
  - Dizziness [Recovered/Resolved]
  - Asthma [Unknown]
  - Insomnia [Not Recovered/Not Resolved]
  - Balance disorder [Recovered/Resolved]

NARRATIVE: CASE EVENT DATE: 201804
